FAERS Safety Report 9735659 (Version 3)
Quarter: 2014Q1

REPORT INFORMATION
  Report Type: Report from Study
  Country: DE (occurrence: DE)
  Receive Date: 20131206
  Receipt Date: 20140120
  Transmission Date: 20141002
  Serious: Yes (Hospitalization)
  Sender: FDA-Public Use
  Company Number: PHHY2012DE106970

PATIENT
  Sex: Male

DRUGS (2)
  1. EXTAVIA [Suspect]
     Indication: MULTIPLE SCLEROSIS
     Dosage: 250 UG/ML, ONCE EVERY OTHER DAY
     Route: 058
     Dates: start: 20120621
  2. EXTAVIA [Suspect]
     Dosage: 125 UG/ML, ONCE EVERY OTHER DAY
     Route: 058

REACTIONS (11)
  - Multiple sclerosis relapse [Unknown]
  - Paraesthesia [Not Recovered/Not Resolved]
  - Dizziness postural [Not Recovered/Not Resolved]
  - Gait disturbance [Not Recovered/Not Resolved]
  - Tremor [Not Recovered/Not Resolved]
  - Hypoaesthesia [Not Recovered/Not Resolved]
  - Fatigue [Not Recovered/Not Resolved]
  - Pruritus [Recovered/Resolved]
  - Rash pustular [Recovered/Resolved]
  - Erythema [Recovered/Resolved]
  - Injection site swelling [Not Recovered/Not Resolved]
